FAERS Safety Report 9018171 (Version 1)
Quarter: 2013Q1

REPORT INFORMATION
  Report Type: Spontaneous
  Country: US (occurrence: None)
  Receive Date: 20130111
  Receipt Date: 20130111
  Transmission Date: 20140127
  Serious: Yes (Life-Threatening, Hospitalization, Disabling, Other)
  Sender: FDA-Public Use
  Company Number: None

PATIENT
  Sex: Female
  Weight: 54.4 kg

DRUGS (7)
  1. DALFAMPRIDINE [Suspect]
     Indication: MULTIPLE SCLEROSIS
     Route: 048
  2. ASPIRIN [Concomitant]
  3. BACLOFEN [Concomitant]
  4. CITALOPRAM [Concomitant]
  5. CLONAZEPAM [Concomitant]
  6. GABAPENTIN [Concomitant]
  7. LACTOBACILLUS [Concomitant]

REACTIONS (2)
  - Unresponsive to stimuli [None]
  - Convulsion [None]
